FAERS Safety Report 6724600-9 (Version None)
Quarter: 2010Q2

REPORT INFORMATION
  Report Type: 
  Country: None (occurrence: None)
  Receive Date: 20100513
  Receipt Date: 20100506
  Transmission Date: 20101027
  Serious: Yes (Other)
  Sender: FDA-Public Use
  Company Number: FR-PFIZER INC-2009280089

PATIENT
  Age: 59 Year
  Sex: Male
  Weight: 88 kg

DRUGS (5)
  1. TAHOR [Suspect]
     Indication: ANGINA PECTORIS
     Dosage: 40 MG, PER DAY
     Dates: start: 20090805, end: 20090916
  2. DIAMICRON [Concomitant]
     Indication: DRESSLER'S SYNDROME
     Dosage: 30 MG, 1X/DAY
     Route: 048
     Dates: start: 20050628
  3. TENORMIN [Concomitant]
     Indication: DRESSLER'S SYNDROME
     Dosage: 25 MG, 1X/DAY
     Dates: start: 20090805
  4. KARDEGIC [Concomitant]
     Indication: DRESSLER'S SYNDROME
     Dosage: 75 MG, 1X/DAY
     Route: 048
     Dates: start: 20090805
  5. COVERSYL [Concomitant]
     Indication: DRESSLER'S SYNDROME
     Dosage: 5 MG, 1X/DAY
     Route: 048
     Dates: start: 20090210

REACTIONS (3)
  - CHOLELITHIASIS [None]
  - CHOLESTASIS [None]
  - CYTOLYTIC HEPATITIS [None]
